FAERS Safety Report 8374782-0 (Version None)
Quarter: 2012Q2

REPORT INFORMATION
  Report Type: 
  Country: None (occurrence: None)
  Receive Date: 20120521
  Receipt Date: 20120509
  Transmission Date: 20120825
  Serious: Yes (Hospitalization, Other)
  Sender: FDA-Public Use
  Company Number: US-ELI_LILLY_AND_COMPANY-US201205004031

PATIENT
  Sex: Male

DRUGS (4)
  1. ILETIN [Suspect]
     Dosage: UNK UNK, UNKNOWN
     Dates: end: 19890101
  2. HUMULIN R [Suspect]
     Indication: DIABETES MELLITUS
     Dosage: 5 U, EACH MORNING
     Dates: start: 19890101
  3. HUMULIN N [Suspect]
     Indication: DIABETES MELLITUS
     Dosage: 20 U, EACH MORNING
     Dates: start: 19890101
  4. HUMULIN N [Suspect]
     Dosage: 20 U, EACH MORNING

REACTIONS (8)
  - SKIN NECROSIS [None]
  - PAIN [None]
  - COLONOSCOPY [None]
  - BLISTER [None]
  - HOSPITALISATION [None]
  - LOWER LIMB FRACTURE [None]
  - NONSPECIFIC REACTION [None]
  - CATARACT [None]
